FAERS Safety Report 23997584 (Version 1)
Quarter: 2024Q2

REPORT INFORMATION
  Report Type: Spontaneous
  Country: AU (occurrence: AU)
  Receive Date: 20240621
  Receipt Date: 20240621
  Transmission Date: 20240715
  Serious: Yes (Other)
  Sender: FDA-Public Use
  Company Number: AU-BEIGENE-BGN-2024-008993

PATIENT

DRUGS (1)
  1. BRUKINSA [Suspect]
     Active Substance: ZANUBRUTINIB
     Indication: Waldenstrom^s macroglobulinaemia
     Dosage: UNK

REACTIONS (4)
  - Skin cancer [Unknown]
  - Aspergillus infection [Unknown]
  - Skin neoplasm excision [Unknown]
  - Incision site haemorrhage [Unknown]
